FAERS Safety Report 11528416 (Version 1)
Quarter: 2015Q3

REPORT INFORMATION
  Report Type: Spontaneous
  Country: US (occurrence: US)
  Receive Date: 20150921
  Receipt Date: 20150921
  Transmission Date: 20151125
  Serious: No
  Sender: FDA-Public Use
  Company Number: US-TEVA-545545USA

PATIENT
  Sex: Female

DRUGS (1)
  1. CLONAZEPAM. [Suspect]
     Active Substance: CLONAZEPAM
     Indication: PANIC DISORDER
     Dosage: 1 MILLIGRAM DAILY;
     Route: 048
     Dates: start: 201306

REACTIONS (8)
  - Gait disturbance [Unknown]
  - Coordination abnormal [Unknown]
  - Balance disorder [Unknown]
  - Dizziness [Unknown]
  - Memory impairment [Unknown]
  - Depression [Unknown]
  - Diarrhoea [Unknown]
  - Somnolence [Unknown]
